FAERS Safety Report 9834798 (Version 3)
Quarter: 2014Q1

REPORT INFORMATION
  Report Type: Spontaneous
  Country: US (occurrence: US)
  Receive Date: 20140122
  Receipt Date: 20140228
  Transmission Date: 20141002
  Serious: Yes (Other)
  Sender: FDA-Public Use
  Company Number: US-PFIZER INC-2014017644

PATIENT
  Sex: Female

DRUGS (1)
  1. LYRICA [Suspect]
     Dosage: UNK

REACTIONS (7)
  - Intentional drug misuse [Unknown]
  - Drug dependence [Unknown]
  - Weight increased [Unknown]
  - Hunger [Unknown]
  - Food craving [Unknown]
  - Hyperhidrosis [Unknown]
  - Flushing [Unknown]
